FAERS Safety Report 10263026 (Version 2)
Quarter: 2014Q2

REPORT INFORMATION
  Report Type: Report from Study
  Country: US (occurrence: US)
  Receive Date: 20140626
  Receipt Date: 20140626
  Transmission Date: 20141212
  Serious: Yes (Hospitalization, Other)
  Sender: FDA-Public Use
  Company Number: US-MYLANLABS-2013S1027173

PATIENT
  Age: 70 Year
  Sex: Male
  Weight: 77.85 kg

DRUGS (2)
  1. CLOZAPINE TABLETS [Suspect]
     Indication: MANIA
     Route: 048
     Dates: start: 20131101, end: 20131114
  2. CLOZAPINE TABLETS [Suspect]
     Indication: MANIA
     Route: 048
     Dates: start: 20131124, end: 20131126

REACTIONS (1)
  - Granulocytopenia [Not Recovered/Not Resolved]
